FAERS Safety Report 13868575 (Version 1)
Quarter: 2017Q3

REPORT INFORMATION
  Report Type: Spontaneous
  Country: US (occurrence: US)
  Receive Date: 20170815
  Receipt Date: 20170815
  Transmission Date: 20171127
  Serious: No
  Sender: FDA-Public Use
  Company Number: GXBR2017US000867

PATIENT
  Age: 76 Year
  Sex: Male
  Weight: 72.56 kg

DRUGS (4)
  1. VITAMINS [Concomitant]
     Active Substance: VITAMINS
     Indication: PRODUCT USED FOR UNKNOWN INDICATION
     Dosage: UNK UNK, QD
     Route: 065
  2. GRISEOFULVIN. [Suspect]
     Active Substance: GRISEOFULVIN
     Indication: ECZEMA
  3. GRISEOFULVIN. [Suspect]
     Active Substance: GRISEOFULVIN
     Indication: FUNGAL SKIN INFECTION
     Dosage: 1 DF, QD
     Route: 048
     Dates: start: 201611
  4. CLOBETASOL [Concomitant]
     Active Substance: CLOBETASOL
     Indication: LICHEN PLANUS
     Dosage: UNK
     Route: 065

REACTIONS (5)
  - Dizziness [Not Recovered/Not Resolved]
  - Tinnitus [Not Recovered/Not Resolved]
  - Headache [Not Recovered/Not Resolved]
  - Cold-stimulus headache [Not Recovered/Not Resolved]
  - Feeling abnormal [Not Recovered/Not Resolved]

NARRATIVE: CASE EVENT DATE: 201611
